FAERS Safety Report 9293629 (Version 4)
Quarter: 2013Q3

REPORT INFORMATION
  Report Type: Spontaneous
  Country: IE (occurrence: IE)
  Receive Date: 20130516
  Receipt Date: 20130923
  Transmission Date: 20140515
  Serious: Yes (Other)
  Sender: FDA-Public Use
  Company Number: IE-009507513-1305IRL009646

PATIENT
  Age: 16 Year
  Sex: Female

DRUGS (1)
  1. IMPLANON NXT [Suspect]
     Indication: CONTRACEPTION
     Dosage: UNK
     Route: 059
     Dates: start: 20120227

REACTIONS (8)
  - Pulmonary embolism [Unknown]
  - Musculoskeletal chest pain [Unknown]
  - Local swelling [Unknown]
  - Cholelithiasis [Unknown]
  - Headache [Unknown]
  - Oropharyngeal pain [Unknown]
  - Arthralgia [Not Recovered/Not Resolved]
  - Tonsillitis [Unknown]
